FAERS Safety Report 21300700 (Version 1)
Quarter: 2022Q3

REPORT INFORMATION
  Report Type: Spontaneous
  Country: AT (occurrence: AT)
  Receive Date: 20220907
  Receipt Date: 20220907
  Transmission Date: 20221027
  Serious: Yes (Other)
  Sender: FDA-Public Use
  Company Number: AT-BoehringerIngelheim-2022-BI-190511

PATIENT
  Age: 82 Year
  Sex: Female
  Weight: 48 kg

DRUGS (3)
  1. OFEV [Suspect]
     Active Substance: NINTEDANIB
     Indication: Sarcoidosis
  2. OFEV [Suspect]
     Active Substance: NINTEDANIB
     Indication: Pulmonary fibrosis
  3. FOSAMAX [Concomitant]
     Active Substance: ALENDRONATE SODIUM
     Indication: Product used for unknown indication

REACTIONS (8)
  - Pulmonary fibrosis [Unknown]
  - Nausea [Unknown]
  - Vomiting [Unknown]
  - Blood pressure abnormal [Unknown]
  - Hypertension [Unknown]
  - Alopecia [Unknown]
  - Cough [Unknown]
  - Dyspnoea [Unknown]
